FAERS Safety Report 6450676-2 (Version None)
Quarter: 2009Q4

REPORT INFORMATION
  Report Type: 
  Country: None (occurrence: None)
  Receive Date: 20091123
  Receipt Date: 20091118
  Transmission Date: 20100525
  Serious: Yes (Death, Hospitalization)
  Sender: FDA-Public Use
  Company Number: CN-ROCHE-666484

PATIENT
  Sex: Female

DRUGS (8)
  1. MYCOPHENOLATE MOFETIL [Suspect]
     Indication: SYSTEMIC LUPUS ERYTHEMATOSUS
     Route: 048
     Dates: start: 20090717, end: 20091019
  2. BLINDED ABATACEPT [Suspect]
     Indication: SYSTEMIC LUPUS ERYTHEMATOSUS
     Dosage: FORM: SOLUTION (INJECTABLE)
     Route: 042
     Dates: start: 20090717, end: 20090923
  3. PREDNISONE [Suspect]
     Indication: SYSTEMIC LUPUS ERYTHEMATOSUS
     Route: 048
     Dates: start: 20090626
  4. PREDNISONE [Suspect]
     Dosage: DOSE TAPERED
     Route: 048
     Dates: start: 20090902
  5. PREDNISONE [Suspect]
     Route: 048
     Dates: start: 20091019
  6. HYDROXYCHLOROQUINE SULFATE [Concomitant]
     Dates: start: 20090626
  7. ASPIRIN [Concomitant]
     Dates: start: 20090702
  8. BENAZEPRIL HYDROCHLORIDE [Concomitant]
     Dates: start: 20090626, end: 20091018

REACTIONS (3)
  - INTERSTITIAL LUNG DISEASE [None]
  - PNEUMONIA [None]
  - RESPIRATORY FAILURE [None]
